FAERS Safety Report 5285139-3 (Version None)
Quarter: 2007Q2

REPORT INFORMATION
  Report Type: 
  Country: None (occurrence: None)
  Receive Date: 20070403
  Receipt Date: 20070320
  Transmission Date: 20071010
  Serious: Yes (Death, Hospitalization, Other)
  Sender: FDA-Public Use
  Company Number: US-PFIZER INC-2006133693

PATIENT
  Sex: Female

DRUGS (2)
  1. CELEBREX [Suspect]
     Indication: ARTHRITIS
     Route: 048
     Dates: start: 20021215, end: 20030211
  2. VIOXX [Suspect]
     Route: 048
     Dates: start: 20020729, end: 20040125

REACTIONS (2)
  - DEATH [None]
  - ISCHAEMIC STROKE [None]
